FAERS Safety Report 19796876 (Version 1)
Quarter: 2021Q3

REPORT INFORMATION
  Report Type: Spontaneous
  Country: US (occurrence: US)
  Receive Date: 20210907
  Receipt Date: 20210907
  Transmission Date: 20211014
  Serious: No
  Sender: FDA-Public Use
  Company Number: US-AIMMUNE THERAPEUTICS, INC.-2021AIMT00509

PATIENT

DRUGS (1)
  1. PALFORZIA [Suspect]
     Active Substance: PEANUT
     Indication: FOOD ALLERGY
     Dosage: LOWER DOSE OF PALFORZIA PRIRO TO THE 12 MG, 1X/DAY
     Route: 048
     Dates: end: 20210804

REACTIONS (2)
  - Abdominal discomfort [Recovered/Resolved]
  - Throat irritation [Recovered/Resolved]
